FAERS Safety Report 20359950 (Version 2)
Quarter: 2023Q1

REPORT INFORMATION
  Report Type: Spontaneous
  Country: US (occurrence: US)
  Receive Date: 20220121
  Receipt Date: 20230106
  Transmission Date: 20230417
  Serious: No
  Sender: FDA-Public Use
  Company Number: US-TERSERA THERAPEUTICS LLC-2021TRS005979

PATIENT

DRUGS (2)
  1. PRIALT [Suspect]
     Active Substance: ZICONOTIDE ACETATE
     Indication: Spinal pain
     Dosage: 0.0487 MCG PER 24 HOURS (CONCENTRATION: 8 MCG/ML)
     Route: 037
  2. FENTANYL [Suspect]
     Active Substance: FENTANYL
     Indication: Spinal pain
     Dosage: 9.1 MCG PER 24 HRS (CONCENTRATION: 1500 MCG/ML)
     Route: 037

REACTIONS (3)
  - Pain [Not Recovered/Not Resolved]
  - Withdrawal syndrome [Recovered/Resolved]
  - Off label use [Unknown]

NARRATIVE: CASE EVENT DATE: 20220627
